FAERS Safety Report 19133303 (Version 3)
Quarter: 2021Q2

REPORT INFORMATION
  Report Type: Report from Study
  Country: None (occurrence: US)
  Receive Date: 20210413
  Receipt Date: 20210604
  Transmission Date: 20210717
  Serious: Yes (Other)
  Sender: FDA-Public Use
  Company Number: US-ABBVIE-21K-163-3850969-00

PATIENT
  Age: 68 Year
  Sex: Female

DRUGS (2)
  1. RINVOQ [Suspect]
     Active Substance: UPADACITINIB
     Indication: RHEUMATOID ARTHRITIS
     Route: 048
  2. RINVOQ [Suspect]
     Active Substance: UPADACITINIB
     Route: 048
     Dates: start: 20210527

REACTIONS (9)
  - Cerebrovascular accident [Not Recovered/Not Resolved]
  - Eye pain [Recovered/Resolved]
  - Blindness [Recovered/Resolved]
  - Neck surgery [Recovered/Resolved]
  - Cerebral haemorrhage [Recovered/Resolved]
  - Headache [Recovered/Resolved]
  - Neck surgery [Not Recovered/Not Resolved]
  - Cerebral haemorrhage [Not Recovered/Not Resolved]
  - Pneumonia [Not Recovered/Not Resolved]

NARRATIVE: CASE EVENT DATE: 2021
